FAERS Safety Report 11575677 (Version 2)
Quarter: 2015Q4

REPORT INFORMATION
  Report Type: Spontaneous
  Country: US (occurrence: US)
  Receive Date: 20150916
  Receipt Date: 20151027
  Transmission Date: 20160304
  Serious: No
  Sender: FDA-Public Use
  Company Number: US-ELI_LILLY_AND_COMPANY-US200908005996

PATIENT
  Age: 56 Year
  Sex: Female

DRUGS (8)
  1. FORTEO [Suspect]
     Active Substance: TERIPARATIDE
     Indication: OSTEOPOROSIS
     Dosage: 20 UG, DAILY (1/D)
     Route: 065
     Dates: start: 200908
  2. XANAX [Concomitant]
     Active Substance: ALPRAZOLAM
  3. VALIUM [Concomitant]
     Active Substance: DIAZEPAM
     Indication: PAIN
  4. VITAMIN B 12 RECIP [Concomitant]
     Dosage: 1 D/F, MONTHLY (1/M)
  5. DICLOFENAC SODIUM. [Concomitant]
     Active Substance: DICLOFENAC SODIUM
     Indication: ARTHRALGIA
     Route: 061
  6. PREVACID [Concomitant]
     Active Substance: LANSOPRAZOLE
  7. TUMS [Concomitant]
     Active Substance: CALCIUM CARBONATE
  8. VICODIN [Concomitant]
     Active Substance: ACETAMINOPHEN\HYDROCODONE BITARTRATE

REACTIONS (6)
  - Abdominal discomfort [Unknown]
  - Ankle fracture [Unknown]
  - Feeling abnormal [Unknown]
  - Pain in extremity [Not Recovered/Not Resolved]
  - Malaise [Unknown]
  - Fatigue [Not Recovered/Not Resolved]

NARRATIVE: CASE EVENT DATE: 2009
